FAERS Safety Report 6759699-7 (Version None)
Quarter: 2010Q2

REPORT INFORMATION
  Report Type: 
  Country: None (occurrence: None)
  Receive Date: 20100608
  Receipt Date: 20100525
  Transmission Date: 20101027
  Serious: Yes (Death, Hospitalization)
  Sender: FDA-Public Use
  Company Number: HU-ELI_LILLY_AND_COMPANY-HU201005007663

PATIENT
  Sex: Male
  Weight: 78 kg

DRUGS (8)
  1. PEMETREXED [Suspect]
     Indication: NON-SMALL CELL LUNG CANCER
     Dosage: 900 MG, WEEKLY (1/W)
     Route: 042
     Dates: start: 20100511
  2. CISPLATIN [Suspect]
     Indication: NON-SMALL CELL LUNG CANCER
     Dosage: 135 MG, WEEKLY (1/W)
     Route: 042
     Dates: start: 20100511
  3. OTHER PHARMA COMPANY INV DRUG [Suspect]
     Indication: NON-SMALL CELL LUNG CANCER
     Dosage: 800 MG, 2 IN 3 WEEKS
     Route: 042
     Dates: start: 20100511
  4. FOLIC ACID [Concomitant]
     Indication: PROPHYLAXIS
  5. VITAMIN B-12 [Concomitant]
  6. MEDROL [Concomitant]
     Indication: PROPHYLAXIS
  7. NAVOBAN [Concomitant]
     Indication: PROPHYLAXIS
  8. EMETRON [Concomitant]
     Indication: PROPHYLAXIS

REACTIONS (4)
  - ASTHENIA [None]
  - DIARRHOEA [None]
  - HOSPITALISATION [None]
  - MALIGNANT NEOPLASM PROGRESSION [None]
